FAERS Safety Report 7107864 (Version 13)
Quarter: 2012Q4

REPORT INFORMATION
  Report Type: 
  Country: CA (occurrence: CA)
  Receive Date: 20090908
  Receipt Date: 20121106
  Transmission Date: 20130627
  Serious: Yes (Death, Life-Threatening, Hospitalization, Other)
  Sender: FDA-Public Use
  Company Number: PHHY2009CA37260

PATIENT
  Sex: Male

DRUGS (3)
  1. ZOMETA [Suspect]
     Indication: PROSTATE CANCER
     Dosage: 4 mg, QMO
     Route: 042
     Dates: start: 20080328
  2. ZOMETA [Suspect]
     Dosage: 4 mg, every four weeks
     Route: 042
  3. ZOMETA [Suspect]
     Dosage: 4 mg, QMO
     Route: 042
     Dates: end: 20110618

REACTIONS (16)
  - Death [Fatal]
  - Terminal state [Unknown]
  - Blood testosterone decreased [Unknown]
  - Prostatic specific antigen increased [Unknown]
  - Blood lactate dehydrogenase increased [Unknown]
  - White blood cells urine positive [Unknown]
  - Red blood cells urine positive [Unknown]
  - Protein urine present [Unknown]
  - Blood sodium decreased [Unknown]
  - Blood pressure increased [Unknown]
  - Red blood cell count decreased [Unknown]
  - Haematocrit decreased [Unknown]
  - Mean cell haemoglobin concentration decreased [Unknown]
  - Mean cell haemoglobin decreased [Unknown]
  - Lymphocyte count decreased [Unknown]
  - Haemoglobin decreased [Unknown]
